FAERS Safety Report 16985180 (Version 1)
Quarter: 2019Q4

REPORT INFORMATION
  Report Type: Spontaneous
  Country: US (occurrence: US)
  Receive Date: 20190917
  Receipt Date: 20190917
  Transmission Date: 20200122
  Serious: Yes (Hospitalization)
  Sender: FDA-Public Use
  Company Number: None

PATIENT
  Age: 88 Year
  Sex: Male

DRUGS (1)
  1. MINOCYCLINE [Suspect]
     Active Substance: MINOCYCLINE HYDROCHLORIDE
     Indication: PEMPHIGOID
     Route: 048
     Dates: start: 20190806, end: 20190830

REACTIONS (7)
  - Pyrexia [None]
  - Haematological malignancy [None]
  - Condition aggravated [None]
  - Pemphigoid [None]
  - Autoimmune disorder [None]
  - White blood cell count increased [None]
  - Vasculitis [None]

NARRATIVE: CASE EVENT DATE: 20190830
